FAERS Safety Report 13284757 (Version 5)
Quarter: 2019Q2

REPORT INFORMATION
  Report Type: Spontaneous
  Country: CA (occurrence: CA)
  Receive Date: 20170301
  Receipt Date: 20190508
  Transmission Date: 20190711
  Serious: Yes (Other)
  Sender: FDA-Public Use
  Company Number: CA-PFIZER INC-2016568088

PATIENT
  Age: 68 Year
  Sex: Female

DRUGS (5)
  1. XELJANZ [Suspect]
     Active Substance: TOFACITINIB CITRATE
     Indication: RHEUMATOID ARTHRITIS
     Dosage: 5 MG, 2X/DAY
     Route: 048
     Dates: start: 20161117, end: 201702
  2. LYRICA [Suspect]
     Active Substance: PREGABALIN
     Indication: RHEUMATOID ARTHRITIS
     Dosage: UNK
  3. TYLENOL [Concomitant]
     Active Substance: ACETAMINOPHEN
     Indication: PAIN
     Dosage: UNK
  4. MORPHINE SULFATE. [Concomitant]
     Active Substance: MORPHINE SULFATE
     Indication: PAIN
     Dosage: UNK
  5. FENTANYL. [Suspect]
     Active Substance: FENTANYL
     Dosage: UNK
     Route: 061

REACTIONS (19)
  - Hot flush [Unknown]
  - Speech disorder [Not Recovered/Not Resolved]
  - Head injury [Unknown]
  - Tremor [Unknown]
  - Skin ulcer [Not Recovered/Not Resolved]
  - Fall [Unknown]
  - Peripheral swelling [Unknown]
  - Feeling cold [Unknown]
  - Headache [Not Recovered/Not Resolved]
  - Fear [Unknown]
  - Urinary tract infection [Not Recovered/Not Resolved]
  - Condition aggravated [Not Recovered/Not Resolved]
  - Vulval disorder [Unknown]
  - Pain in extremity [Not Recovered/Not Resolved]
  - Depression [Unknown]
  - Pneumonia [Not Recovered/Not Resolved]
  - Therapeutic product effect incomplete [Not Recovered/Not Resolved]
  - Balance disorder [Unknown]
  - Fluid retention [Not Recovered/Not Resolved]

NARRATIVE: CASE EVENT DATE: 2016
